FAERS Safety Report 15561511 (Version 1)
Quarter: 2018Q4

REPORT INFORMATION
  Report Type: Spontaneous
  Country: AR (occurrence: AR)
  Receive Date: 20181029
  Receipt Date: 20181029
  Transmission Date: 20190205
  Serious: Yes (Other)
  Sender: FDA-Public Use
  Company Number: AR-PFIZER INC-2018437276

PATIENT
  Age: 53 Year
  Sex: Male

DRUGS (1)
  1. SUTENT [Suspect]
     Active Substance: SUNITINIB MALATE
     Indication: METASTATIC RENAL CELL CARCINOMA
     Dosage: UNK
     Dates: start: 20171016

REACTIONS (8)
  - Pain [Unknown]
  - Laboratory test abnormal [Unknown]
  - Eye swelling [Unknown]
  - Immune system disorder [Unknown]
  - Drug-induced liver injury [Unknown]
  - Jaundice [Unknown]
  - Limb injury [Unknown]
  - Swelling face [Unknown]

NARRATIVE: CASE EVENT DATE: 201810
